FAERS Safety Report 6236701-2 (Version None)
Quarter: 2009Q2

REPORT INFORMATION
  Report Type: 
  Country: None (occurrence: None)
  Receive Date: 20090619
  Receipt Date: 20090325
  Transmission Date: 20091009
  Serious: No
  Sender: FDA-Public Use
  Company Number: US-ASTRAZENECA-2009UW07533

PATIENT
  Age: 88 Year
  Sex: Female
  Weight: 65.8 kg

DRUGS (8)
  1. ATACAND [Suspect]
     Indication: HYPERTENSION
     Route: 048
  2. ATACAND [Suspect]
     Route: 048
  3. CARVEDILOL [Concomitant]
  4. THYROID TAB [Concomitant]
  5. SLO VENT [Concomitant]
  6. NASACORT [Concomitant]
  7. ASCORBIC ACID [Concomitant]
  8. FERROUS SULFATE TAB [Concomitant]

REACTIONS (8)
  - BLOOD PRESSURE INCREASED [None]
  - BLOOD UREA INCREASED [None]
  - DEHYDRATION [None]
  - FEELING ABNORMAL [None]
  - FEELING JITTERY [None]
  - GAIT DISTURBANCE [None]
  - MOVEMENT DISORDER [None]
  - PSYCHOMOTOR HYPERACTIVITY [None]
